FAERS Safety Report 24248513 (Version 3)
Quarter: 2024Q3

REPORT INFORMATION
  Report Type: Spontaneous
  Country: PL (occurrence: PL)
  Receive Date: 20240826
  Receipt Date: 20240906
  Transmission Date: 20241016
  Serious: Yes (Hospitalization)
  Sender: MYLAN
  Company Number: PL-BAUSCH-BL-2024-011932

PATIENT
  Age: 72 Year
  Sex: Female

DRUGS (16)
  1. VENLAFAXINE [Interacting]
     Active Substance: VENLAFAXINE HYDROCHLORIDE
     Indication: Depression
     Dosage: 75 MILLIGRAM, QD (UP TO 75 MG/DAY)
     Route: 065
  2. TELMISARTAN [Interacting]
     Active Substance: TELMISARTAN
     Indication: Hypertension
     Dosage: 80 MILLIGRAM, QD (80 MG/DAY)
     Route: 065
  3. LITHIUM [Interacting]
     Active Substance: LITHIUM
     Indication: Mental disorder
     Dosage: 312.5 MILLIGRAM, BID (12 HOURS, 625 MG/DAY IN TWO DAILY DOSES FOR 8 MONTHS)
     Route: 065
  4. LITHIUM [Interacting]
     Active Substance: LITHIUM
     Indication: Bipolar disorder
     Dosage: 625 MILLIGRAM, BID (TWO DAILY DOSES )
     Route: 065
  5. HYDROCHLOROTHIAZIDE [Interacting]
     Active Substance: HYDROCHLOROTHIAZIDE
     Indication: Hypertension
     Dosage: 25 MILLIGRAM, QD (25 MG/DAY)
     Route: 065
  6. CARBAMAZEPINE [Interacting]
     Active Substance: CARBAMAZEPINE
     Indication: Bipolar disorder
     Dosage: 600 MILLIGRAM, QD (600 MG/DAY)
     Route: 065
  7. CARBAMAZEPINE [Interacting]
     Active Substance: CARBAMAZEPINE
     Indication: Mental disorder
     Dosage: UNK
     Route: 065
  8. LEVOTHYROXINE [Concomitant]
     Active Substance: LEVOTHYROXINE\LEVOTHYROXINE SODIUM
     Indication: Hypothyroidism
     Dosage: 75 MICROGRAM, QD (75 MICROGRAM PER DAY)
     Route: 065
  9. RIVAROXABAN [Concomitant]
     Active Substance: RIVAROXABAN
     Indication: Embolism venous
     Dosage: 20 MILLIGRAM, QD (20 MG/DAY)
     Route: 065
  10. QUETIAPINE [Concomitant]
     Active Substance: QUETIAPINE
     Indication: Bipolar disorder
     Dosage: 25 MILLIGRAM, QD (24 HOURS, OVERNIGHT)
     Route: 065
  11. QUETIAPINE [Concomitant]
     Active Substance: QUETIAPINE
     Indication: Mental disorder
  12. ALLOPURINOL [Concomitant]
     Active Substance: ALLOPURINOL
     Indication: Gout
     Dosage: 300 MILLIGRAM, QD (300 MG/DAY)
     Route: 065
  13. TORSEMIDE [Concomitant]
     Active Substance: TORSEMIDE
     Indication: Hypertension
     Dosage: 10 MILLIGRAM, QD (10 MG/DAY)
     Route: 065
  14. ROSUVASTATIN [Concomitant]
     Active Substance: ROSUVASTATIN\ROSUVASTATIN CALCIUM
     Indication: Type V hyperlipidaemia
     Dosage: 20 MILLIGRAM, QD (20 MG/DAY)
     Route: 065
  15. AMILORIDE [Concomitant]
     Active Substance: AMILORIDE
     Indication: Hypertension
     Dosage: 2.5 MILLIGRAM, QD (2.5 MG/DAY)
     Route: 065
  16. EZETIMIBE [Concomitant]
     Active Substance: EZETIMIBE
     Indication: Type V hyperlipidaemia
     Dosage: 10 MILLIGRAM, QD (10 MG/DAY)
     Route: 065

REACTIONS (11)
  - Toxicity to various agents [Recovering/Resolving]
  - Drug clearance decreased [Unknown]
  - Drug interaction [Recovering/Resolving]
  - Anxiety [Recovering/Resolving]
  - Ataxia [Recovering/Resolving]
  - Depressed mood [Recovering/Resolving]
  - Abdominal pain [Recovering/Resolving]
  - Asthenia [Recovering/Resolving]
  - Tremor [Recovering/Resolving]
  - Diarrhoea [Recovering/Resolving]
  - Fear [Unknown]
